FAERS Safety Report 11571455 (Version 2)
Quarter: 2016Q4

REPORT INFORMATION
  Report Type: Spontaneous
  Country: US (occurrence: US)
  Receive Date: 20150929
  Receipt Date: 20161007
  Transmission Date: 20170206
  Serious: No
  Sender: FDA-Public Use
  Company Number: US-SA-2015SA096133

PATIENT
  Age: 23 Year
  Sex: Male

DRUGS (1)
  1. AUBAGIO [Suspect]
     Active Substance: TERIFLUNOMIDE
     Indication: MULTIPLE SCLEROSIS
     Route: 048
     Dates: start: 20150529, end: 20151003

REACTIONS (5)
  - Feeling abnormal [Unknown]
  - Nausea [Unknown]
  - Drug dose omission [Unknown]
  - Feeling hot [Unknown]
  - Depression [Unknown]

NARRATIVE: CASE EVENT DATE: 2015
